FAERS Safety Report 24079434 (Version 6)
Quarter: 2025Q3

REPORT INFORMATION
  Report Type: Spontaneous
  Country: US (occurrence: US)
  Receive Date: 20240711
  Receipt Date: 20250907
  Transmission Date: 20251021
  Serious: No
  Sender: SANOFI AVENTIS
  Company Number: US-SA-SAC20240705000412

PATIENT
  Age: 53 Year
  Sex: Female

DRUGS (16)
  1. DUPIXENT [Suspect]
     Active Substance: DUPILUMAB
     Indication: Asthma
     Dosage: 300 MG, QOW
     Route: 058
     Dates: start: 20240501
  2. CELEBREX [Suspect]
     Active Substance: CELECOXIB
     Indication: Arthralgia
  3. CELEBREX [Suspect]
     Active Substance: CELECOXIB
     Indication: Pain in extremity
  4. PREGABALIN [Concomitant]
     Active Substance: PREGABALIN
  5. OXYCODONE HYDROCHLORIDE [Concomitant]
     Active Substance: OXYCODONE HYDROCHLORIDE
  6. CIPROFLOXACIN [Concomitant]
     Active Substance: CIPROFLOXACIN
  7. CEPHALEXIN [Concomitant]
     Active Substance: CEPHALEXIN
  8. METHOCARBAMOL [Concomitant]
     Active Substance: METHOCARBAMOL
  9. IBU [Concomitant]
     Active Substance: IBUPROFEN
  10. ACETAMINOPHEN [Concomitant]
     Active Substance: ACETAMINOPHEN
  11. CIPROFLOXACIN [Concomitant]
     Active Substance: CIPROFLOXACIN
  12. ACETAMINOPHEN [Concomitant]
     Active Substance: ACETAMINOPHEN
  13. CEPHALEXIN [Concomitant]
     Active Substance: CEPHALEXIN
  14. METHOCARBAMOL [Concomitant]
     Active Substance: METHOCARBAMOL
  15. Ibu tab [Concomitant]
  16. PREGABALIN [Concomitant]
     Active Substance: PREGABALIN

REACTIONS (9)
  - Infection [Not Recovered/Not Resolved]
  - Feeling abnormal [Unknown]
  - Contusion [Unknown]
  - Cystitis [Recovered/Resolved]
  - Myalgia [Not Recovered/Not Resolved]
  - Pain in extremity [Unknown]
  - Musculoskeletal pain [Unknown]
  - Arthralgia [Unknown]
  - Drug hypersensitivity [Unknown]

NARRATIVE: CASE EVENT DATE: 20240101
